FAERS Safety Report 9515523 (Version 1)
Quarter: 2013Q3

REPORT INFORMATION
  Report Type: Spontaneous
  Country: US (occurrence: US)
  Receive Date: 20130911
  Receipt Date: 20130911
  Transmission Date: 20140515
  Serious: Yes (Other)
  Sender: FDA-Public Use
  Company Number: PHEH2013US018982

PATIENT
  Sex: Male

DRUGS (5)
  1. DIOVAN [Suspect]
     Indication: HYPERTENSION
     Dosage: 160 MG, QD
  2. DIOVAN [Suspect]
     Dosage: 160 MG, BID
  3. FLOMAX [Concomitant]
  4. PRAVASTATIN [Concomitant]
     Indication: BLOOD CHOLESTEROL ABNORMAL
  5. CARVEDILOL [Concomitant]
     Indication: HYPERTENSION

REACTIONS (2)
  - Aneurysm [Not Recovered/Not Resolved]
  - Blood pressure increased [Not Recovered/Not Resolved]
